FAERS Safety Report 8876484 (Version 2)
Quarter: 2012Q4

REPORT INFORMATION
  Report Type: 
  Country: US (occurrence: US)
  Receive Date: 20121031
  Receipt Date: 20121207
  Transmission Date: 20130627
  Serious: Yes (Other)
  Sender: FDA-Public Use
  Company Number: US-MYLANLABS-2012S1022034

PATIENT
  Age: 77 Year
  Sex: Female
  Weight: 72.58 kg

DRUGS (7)
  1. PREDNISOLONE [Suspect]
     Indication: CATARACT OPERATION
     Dosage: each eye
     Route: 047
     Dates: start: 201209
  2. LEVOTHYROXINE [Suspect]
     Indication: HYPOTHYROIDISM
     Route: 048
     Dates: start: 20121002, end: 20121005
  3. ASPIRIN [Concomitant]
     Route: 048
  4. CLONIDINE [Concomitant]
     Dosage: for SBP }160
     Route: 048
     Dates: start: 20120925
  5. AMLODIPINE [Concomitant]
     Route: 048
     Dates: start: 20120925
  6. NEVANAC [Concomitant]
  7. NEOMYCIN [Concomitant]
     Dosage: ^Part of the time^

REACTIONS (5)
  - Drug hypersensitivity [Recovered/Resolved]
  - Blood pressure increased [Recovered/Resolved]
  - Tension headache [Recovered/Resolved]
  - Tinnitus [Not Recovered/Not Resolved]
  - Paraesthesia [Recovered/Resolved]
